FAERS Safety Report 9556942 (Version 1)
Quarter: 2013Q3

REPORT INFORMATION
  Report Type: Spontaneous
  Country: US (occurrence: None)
  Receive Date: 20130909
  Receipt Date: 20130909
  Transmission Date: 20140515
  Serious: Yes (Other)
  Sender: FDA-Public Use
  Company Number: 376819

PATIENT
  Age: 45 Year
  Sex: Female
  Weight: 85.3 kg

DRUGS (2)
  1. VICTOZA (LIRAGLUTIDE) SOLUTION FOR INJECTION, 6MG/ML [Suspect]
     Indication: TYPE 2 DIABETES MELLITUS
     Route: 058
     Dates: start: 20120812, end: 20130424
  2. ACTOPLUS MET (METFORMIN HYDROCHLORIDE,PIOGLITAZONE HYDROCHLORIDE) [Concomitant]

REACTIONS (2)
  - Pancreatitis [None]
  - Blood glucose increased [None]
